FAERS Safety Report 8451910-X (Version None)
Quarter: 2012Q2

REPORT INFORMATION
  Report Type: 
  Country: None (occurrence: None)
  Receive Date: 20120620
  Receipt Date: 20120323
  Transmission Date: 20120825
  Serious: No
  Sender: FDA-Public Use
  Company Number: US-VERTEX PHARMACEUTICALS INC.-AE-2012-004283

PATIENT
  Sex: Female
  Weight: 54.48 kg

DRUGS (5)
  1. PEGASYS [Concomitant]
     Indication: HEPATITIS C
     Route: 058
     Dates: start: 20120312
  2. DILANTIN [Concomitant]
     Indication: CONVULSION
  3. PHENOBARBITAL TAB [Concomitant]
     Indication: CONVULSION
  4. INCIVEK [Suspect]
     Indication: HEPATITIS C
     Route: 048
     Dates: start: 20120312
  5. RIBAVIRIN [Concomitant]
     Indication: HEPATITIS C
     Dates: start: 20120312

REACTIONS (2)
  - RASH PRURITIC [None]
  - ASTHENIA [None]
